FAERS Safety Report 7356563-X (Version None)
Quarter: 2011Q1

REPORT INFORMATION
  Report Type: 
  Country: None (occurrence: None)
  Receive Date: 20110316
  Receipt Date: 20110302
  Transmission Date: 20110831
  Serious: Yes (Hospitalization)
  Sender: FDA-Public Use
  Company Number: PHFR2011GB01478

PATIENT
  Sex: Female

DRUGS (1)
  1. CLOZARIL [Suspect]
     Indication: SCHIZOPHRENIA
     Dosage: UNK MG, UNK
     Route: 048
     Dates: start: 20110128, end: 20110224

REACTIONS (8)
  - INFLAMMATORY MARKER INCREASED [None]
  - CONSTIPATION [None]
  - LIVER DISORDER [None]
  - HEPATITIS [None]
  - VOMITING [None]
  - HYPOTENSION [None]
  - NAUSEA [None]
  - LIVER FUNCTION TEST ABNORMAL [None]
